FAERS Safety Report 8832986 (Version 2)
Quarter: 2012Q4

REPORT INFORMATION
  Report Type: 
  Country: JP (occurrence: JP)
  Receive Date: 20121010
  Receipt Date: 20121026
  Transmission Date: 20130627
  Serious: Yes (Hospitalization)
  Sender: FDA-Public Use
  Company Number: JP-B.I. PHARMACEUTICALS,INC./RIDGEFIELD-2012-BP-24434NB

PATIENT
  Age: 67 Year
  Sex: Male
  Weight: 50 kg

DRUGS (4)
  1. PRAZAXA [Suspect]
     Indication: ATRIAL FIBRILLATION
     Dosage: 220 mg
     Route: 048
  2. PRAZAXA [Suspect]
     Dosage: 110 mg
     Route: 048
  3. LIVALO [Concomitant]
     Indication: HYPERLIPIDAEMIA
     Route: 048
  4. CIBENOL [Concomitant]
     Indication: ARRHYTHMIA
     Route: 048

REACTIONS (3)
  - Fracture [Unknown]
  - Haemoptysis [Unknown]
  - Haematochezia [Unknown]
